FAERS Safety Report 9684485 (Version 2)
Quarter: 2013Q4

REPORT INFORMATION
  Report Type: Report from Study
  Country: BR (occurrence: BR)
  Receive Date: 20131112
  Receipt Date: 20131112
  Transmission Date: 20140711
  Serious: Yes (Other)
  Sender: FDA-Public Use
  Company Number: PHHY2013BR057103

PATIENT
  Sex: 0

DRUGS (3)
  1. OMNITROPE [Suspect]
     Indication: BLOOD GROWTH HORMONE
     Dosage: 0.8 MG, QD
     Route: 058
  2. CLUSIVOL [Concomitant]
  3. ZINC [Concomitant]

REACTIONS (3)
  - Haemorrhage [Not Recovered/Not Resolved]
  - Medication error [Not Recovered/Not Resolved]
  - Drug ineffective [Not Recovered/Not Resolved]
